FAERS Safety Report 21979056 (Version 1)
Quarter: 2023Q1

REPORT INFORMATION
  Report Type: Spontaneous
  Country: US (occurrence: None)
  Receive Date: 20230210
  Receipt Date: 20230210
  Transmission Date: 20230417
  Serious: No
  Sender: FDA-Public Use
  Company Number: 2023A034916

PATIENT
  Age: 65 Year
  Sex: Female

DRUGS (5)
  1. QUETIAPINE [Suspect]
     Active Substance: QUETIAPINE
     Indication: Product used for unknown indication
  2. VRAYLAR [Suspect]
     Active Substance: CARIPRAZINE
     Indication: Product used for unknown indication
  3. VRAYLAR [Suspect]
     Active Substance: CARIPRAZINE
     Indication: Product used for unknown indication
  4. CARIPRAZINE [Suspect]
     Active Substance: CARIPRAZINE
     Dosage: 1.5MG UNKNOWN
  5. CARIPRAZINE [Suspect]
     Active Substance: CARIPRAZINE
     Dosage: 3.0MG UNKNOWN

REACTIONS (3)
  - Extrapyramidal disorder [Recovered/Resolved]
  - Mania [Unknown]
  - Weight increased [Unknown]
